FAERS Safety Report 4815113-X (Version None)
Quarter: 2005Q4

REPORT INFORMATION
  Report Type: 
  Country: None (occurrence: None)
  Receive Date: 20051027
  Receipt Date: 20051018
  Transmission Date: 20060501
  Serious: Yes (Other)
  Sender: FDA-Public Use
  Company Number: 2005-10-1100

PATIENT
  Sex: Female

DRUGS (4)
  1. CLARINEX [Suspect]
  2. NASONEX [Suspect]
     Dosage: NASAL SPRAY
  3. PROVENTIL-HFA [Suspect]
  4. TRILEPTAL [Concomitant]

REACTIONS (2)
  - CONVULSION [None]
  - DRUG INTERACTION [None]
